FAERS Safety Report 9580221 (Version 1)
Quarter: 2013Q3

REPORT INFORMATION
  Report Type: Spontaneous
  Country: US (occurrence: None)
  Receive Date: 20130916
  Receipt Date: 20130916
  Transmission Date: 20140515
  Serious: Yes (Hospitalization)
  Sender: FDA-Public Use
  Company Number: JPI-P-024929

PATIENT
  Age: 64 Year
  Sex: Female
  Weight: 72.58 kg

DRUGS (2)
  1. XYREM [Suspect]
     Indication: FIBROMYALGIA
     Dosage: 4.5 GM (2.25 GM, 2 IN 1 D), ORAL
     Route: 048
     Dates: start: 20030701
  2. MULTIPLE UNSPECIFIED MEDICATIONS [Concomitant]

REACTIONS (11)
  - Ovarian cyst [None]
  - Pelvic floor muscle weakness [None]
  - Bladder pain [None]
  - Proctalgia [None]
  - Neurotransmitter level altered [None]
  - Skin exfoliation [None]
  - Hair growth abnormal [None]
  - Fibromyalgia [None]
  - Condition aggravated [None]
  - Acne [None]
  - Malaise [None]
